FAERS Safety Report 7665285-7 (Version None)
Quarter: 2011Q3

REPORT INFORMATION
  Report Type: 
  Country: None (occurrence: None)
  Receive Date: 20110806
  Receipt Date: 20110519
  Transmission Date: 20111222
  Serious: No
  Sender: FDA-Public Use
  Company Number: US-ABBOTT-11P-163-0727111-00

PATIENT
  Sex: Female
  Weight: 59.02 kg

DRUGS (6)
  1. STOOL SOFTENER [Concomitant]
     Indication: CONSTIPATION
  2. MIRALAX [Concomitant]
     Indication: CONSTIPATION
  3. LUMIGAN [Concomitant]
     Indication: GLAUCOMA
  4. PLAVIX [Concomitant]
     Indication: CEREBROVASCULAR ACCIDENT
  5. NIASPAN [Suspect]
     Indication: BLOOD CHOLESTEROL INCREASED
     Route: 048
     Dates: start: 20110306
  6. CENTRUM SILVER [Concomitant]
     Indication: SUPPLEMENTATION THERAPY

REACTIONS (1)
  - RECTAL HAEMORRHAGE [None]
